FAERS Safety Report 13263713 (Version 1)
Quarter: 2017Q1

REPORT INFORMATION
  Report Type: Spontaneous
  Country: US (occurrence: US)
  Receive Date: 20170223
  Receipt Date: 20170223
  Transmission Date: 20170428
  Serious: No
  Sender: FDA-Public Use
  Company Number: US-009507513-1702USA009800

PATIENT

DRUGS (4)
  1. DACLATASVIR. [Suspect]
     Active Substance: DACLATASVIR
  2. HARVONI [Suspect]
     Active Substance: LEDIPASVIR\SOFOSBUVIR
  3. REBETOL [Suspect]
     Active Substance: RIBAVIRIN
     Route: 048
  4. SOFOSBUVIR [Suspect]
     Active Substance: SOFOSBUVIR

REACTIONS (1)
  - Treatment failure [Unknown]
